FAERS Safety Report 11102284 (Version 1)
Quarter: 2015Q2

REPORT INFORMATION
  Report Type: Spontaneous
  Country: US (occurrence: None)
  Receive Date: 20150507
  Receipt Date: 20150507
  Transmission Date: 20150821
  Serious: Yes (Other)
  Sender: FDA-Public Use
  Company Number: 2015US0228

PATIENT
  Age: 70 Year
  Sex: Female
  Weight: 88.45 kg

DRUGS (2)
  1. KINERET [Suspect]
     Active Substance: ANAKINRA
     Indication: ARTHRITIS
     Dates: start: 201503, end: 201504
  2. PREDNISONE. [Concomitant]
     Active Substance: PREDNISONE

REACTIONS (4)
  - Feeling abnormal [None]
  - Abdominal discomfort [None]
  - Depressed level of consciousness [None]
  - Social avoidant behaviour [None]

NARRATIVE: CASE EVENT DATE: 201503
